FAERS Safety Report 15203823 (Version 1)
Quarter: 2018Q3

REPORT INFORMATION
  Report Type: Spontaneous
  Country: MX (occurrence: MX)
  Receive Date: 20180726
  Receipt Date: 20180726
  Transmission Date: 20181010
  Serious: Yes (Death)
  Sender: FDA-Public Use
  Company Number: MX-GUERBET-MX-20180016

PATIENT
  Age: 61 Year
  Sex: Male

DRUGS (2)
  1. OPTIRAY 320 [Suspect]
     Active Substance: IOVERSOL
     Indication: COMPUTERISED TOMOGRAM ABDOMEN
     Route: 048
     Dates: start: 20180717, end: 20180717
  2. OPTIRAY 320 [Suspect]
     Active Substance: IOVERSOL
     Route: 042
     Dates: start: 20180717, end: 20180717

REACTIONS (4)
  - Cardiac arrest [Fatal]
  - Product use issue [Fatal]
  - Anaphylactic shock [Fatal]
  - Pneumonia aspiration [Fatal]

NARRATIVE: CASE EVENT DATE: 20180717
